FAERS Safety Report 8988695 (Version 1)
Quarter: 2012Q4

REPORT INFORMATION
  Report Type: 
  Country: US (occurrence: US)
  Receive Date: 20121227
  Receipt Date: 20121227
  Transmission Date: 20130627
  Serious: No
  Sender: FDA-Public Use
  Company Number: US-VERTEX PHARMACEUTICALS INC.-2012-026647

PATIENT

DRUGS (1)
  1. KALYDECO [Suspect]
     Indication: CYSTIC FIBROSIS
     Dosage: 1 DF, bid
     Route: 048

REACTIONS (1)
  - Liver function test abnormal [Unknown]
